FAERS Safety Report 24946782 (Version 2)
Quarter: 2025Q1

REPORT INFORMATION
  Report Type: Spontaneous
  Country: IE (occurrence: IE)
  Receive Date: 20250210
  Receipt Date: 20250313
  Transmission Date: 20250408
  Serious: Yes (Death, Hospitalization, Other)
  Sender: DR REDDYS
  Company Number: None

PATIENT
  Age: 28 Year
  Sex: Male

DRUGS (11)
  1. BORTEZOMIB [Suspect]
     Active Substance: BORTEZOMIB
     Indication: Encephalitis autoimmune
  2. BORTEZOMIB [Suspect]
     Active Substance: BORTEZOMIB
     Indication: Encephalitis
  3. BORTEZOMIB [Suspect]
     Active Substance: BORTEZOMIB
     Indication: Anti-neuronal antibody
  4. CYCLOPHOSPHAMIDE [Suspect]
     Active Substance: CYCLOPHOSPHAMIDE
     Indication: Encephalitis autoimmune
  5. HUMAN IMMUNOGLOBULIN G [Suspect]
     Active Substance: HUMAN IMMUNOGLOBULIN G
     Indication: Encephalitis
     Route: 042
  6. HUMAN IMMUNOGLOBULIN G [Suspect]
     Active Substance: HUMAN IMMUNOGLOBULIN G
     Indication: Anti-neuronal antibody
  7. VELCADE [Suspect]
     Active Substance: BORTEZOMIB
     Indication: Encephalitis autoimmune
  8. VELCADE [Suspect]
     Active Substance: BORTEZOMIB
     Indication: Encephalitis
  9. VELCADE [Suspect]
     Active Substance: BORTEZOMIB
     Indication: Anti-neuronal antibody
  10. METHYLPREDNISOLONE [Concomitant]
     Active Substance: METHYLPREDNISOLONE
     Indication: Product used for unknown indication
     Route: 042
  11. TACROLIMUS [Concomitant]
     Active Substance: TACROLIMUS
     Indication: Product used for unknown indication

REACTIONS (2)
  - Respiratory tract infection [Fatal]
  - Drug ineffective for unapproved indication [Unknown]
